FAERS Safety Report 9440124 (Version 2)
Quarter: 2013Q3

REPORT INFORMATION
  Report Type: Spontaneous
  Country: VE (occurrence: VE)
  Receive Date: 20130805
  Receipt Date: 20130930
  Transmission Date: 20140515
  Serious: Yes (Other)
  Sender: FDA-Public Use
  Company Number: VE-PFIZER INC-2013225171

PATIENT
  Age: 58 Year
  Sex: Female

DRUGS (5)
  1. LIPITOR [Suspect]
     Indication: HYPERCHOLESTEROLAEMIA
     Dosage: 80 MG, ONCE DAILY
     Route: 048
     Dates: start: 2013
  2. PLAVIX [Concomitant]
     Indication: PROPHYLAXIS
     Dosage: 75 MG, ONCE DAILY
     Route: 048
  3. CONCOR [Concomitant]
     Indication: HYPERTENSION
     Dosage: 5 MG, ONCE DAILY
     Route: 048
  4. LANTUS [Concomitant]
     Indication: DIABETES MELLITUS
     Dosage: 14 IU, ONCE DAILY
     Route: 058
  5. APIDRA [Concomitant]
     Indication: DIABETES MELLITUS
     Dosage: 6 IU, TWICE DAILY
     Route: 058

REACTIONS (1)
  - Arterial occlusive disease [Recovered/Resolved]
